FAERS Safety Report 5472529-9 (Version None)
Quarter: 2007Q4

REPORT INFORMATION
  Report Type: 
  Country: None (occurrence: None)
  Receive Date: 20071001
  Receipt Date: 20070926
  Transmission Date: 20080405
  Serious: Yes (Hospitalization)
  Sender: FDA-Public Use
  Company Number: US-ASTRAZENECA-2007UW20120

PATIENT
  Age: 86 Year
  Sex: Female
  Weight: 47.7 kg

DRUGS (9)
  1. PULMICORT [Suspect]
     Route: 055
  2. RHINOCORT [Suspect]
     Route: 045
  3. XOPENEX [Suspect]
     Indication: CHRONIC OBSTRUCTIVE PULMONARY DISEASE
     Route: 055
     Dates: start: 20061201, end: 20070401
  4. XOPENEX HFA INHALATION AEROSOL [Suspect]
     Indication: CHRONIC OBSTRUCTIVE PULMONARY DISEASE
     Route: 048
     Dates: start: 20070401
  5. SPIRIVA [Suspect]
     Dates: end: 20070701
  6. OXYGEN [Concomitant]
  7. LISINOPRIL [Concomitant]
  8. LEVOTHYROXINE SODIUM [Concomitant]
     Indication: HYPOTHYROIDISM
  9. SODIUM CHLORIDE [Concomitant]

REACTIONS (3)
  - HYPONATRAEMIA [None]
  - NASAL SEPTUM ULCERATION [None]
  - RASH PUSTULAR [None]
